FAERS Safety Report 12264706 (Version 1)
Quarter: 2016Q2

REPORT INFORMATION
  Report Type: Spontaneous
  Country: TR (occurrence: TR)
  Receive Date: 20160413
  Receipt Date: 20160413
  Transmission Date: 20160815
  Serious: Yes (Other)
  Sender: FDA-Public Use
  Company Number: TR-BAYER-2016-063732

PATIENT
  Age: 50 Year
  Sex: Female

DRUGS (5)
  1. METRONIDAZOLE. [Concomitant]
     Active Substance: METRONIDAZOLE
     Dosage: UNK
  2. CIPROFLOXACIN. [Suspect]
     Active Substance: CIPROFLOXACIN
  3. MESALAZINE [Concomitant]
     Active Substance: MESALAMINE
     Dosage: UNK
  4. MESALAZINE [Concomitant]
     Active Substance: MESALAMINE
     Dosage: UNK
  5. METHYLPREDNISOLON [Concomitant]
     Active Substance: METHYLPREDNISOLONE
     Dosage: UNK

REACTIONS (5)
  - Infectious colitis [None]
  - Blood lactate dehydrogenase increased [None]
  - Haemolytic uraemic syndrome [None]
  - Platelet count decreased [None]
  - Blood creatinine increased [None]
